FAERS Safety Report 4711857-9 (Version None)
Quarter: 2005Q2

REPORT INFORMATION
  Report Type: 
  Country: None (occurrence: None)
  Receive Date: 20050629
  Receipt Date: 20050405
  Transmission Date: 20051028
  Serious: No
  Sender: FDA-Public Use
  Company Number: 05P-163-0296316-00

PATIENT
  Age: 46 Year
  Sex: Female
  Weight: 63.5036 kg

DRUGS (15)
  1. HUMIRA [Suspect]
     Indication: RHEUMATOID ARTHRITIS
     Dosage: 40 MG, 1 IN 2 WK, SUBCUTANEOUS
     Route: 058
     Dates: start: 20040813, end: 20040801
  2. HUMIRA [Suspect]
     Indication: RHEUMATOID ARTHRITIS
     Dosage: 40 MG, 1 IN 2 WK, SUBCUTANEOUS
     Route: 058
     Dates: start: 20040901, end: 20041201
  3. HUMIRA [Suspect]
     Indication: RHEUMATOID ARTHRITIS
     Dosage: 40 MG, 1 IN 2 WK, SUBCUTANEOUS
     Route: 058
     Dates: start: 20050101, end: 20050201
  4. HUMIRA [Suspect]
     Indication: RHEUMATOID ARTHRITIS
     Dosage: 40 MG, 1 IN 2 WK, SUBCUTANEOUS
     Route: 058
     Dates: start: 20050301
  5. CYANOCOBALAMIN [Concomitant]
  6. BALSALAZIDE SODIUM [Concomitant]
  7. PREDNISONE [Concomitant]
  8. FLUOXETINE HCL [Concomitant]
  9. OMEPRAZOLE [Concomitant]
  10. DONNATAL [Concomitant]
  11. AXOTAL [Concomitant]
  12. IMITREX [Concomitant]
  13. RIZATRIPTAN BENZOATE [Concomitant]
  14. LOMOTIL [Concomitant]
  15. METHOTREXATE [Concomitant]

REACTIONS (7)
  - BACK PAIN [None]
  - BLOOD ALKALINE PHOSPHATASE INCREASED [None]
  - GAMMA-GLUTAMYLTRANSFERASE INCREASED [None]
  - HERPES ZOSTER [None]
  - PNEUMONIA [None]
  - SINUSITIS [None]
  - SKIN ULCER [None]
